FAERS Safety Report 9502585 (Version 1)
Quarter: 2013Q3

REPORT INFORMATION
  Report Type: Spontaneous
  Country: US (occurrence: US)
  Receive Date: 20130906
  Receipt Date: 20130906
  Transmission Date: 20140515
  Serious: Yes (Other)
  Sender: FDA-Public Use
  Company Number: US-BAYER-2013-107196

PATIENT
  Age: 33 Year
  Sex: Female

DRUGS (11)
  1. YASMIN [Suspect]
     Indication: OVARIAN CYST
  2. YASMIN [Suspect]
     Indication: CONTRACEPTION
  3. YAZ [Suspect]
  4. SAFYRAL [Suspect]
  5. TRAMADOL HYDROCHLORIDE [Concomitant]
  6. BUSPAR [Concomitant]
  7. LYRICA [Concomitant]
  8. KLONOPIN [Concomitant]
  9. NEURONTIN [Concomitant]
  10. VYVANSE [Concomitant]
  11. VALIUM [Concomitant]

REACTIONS (1)
  - Pulmonary embolism [None]
